FAERS Safety Report 9338126 (Version 1)
Quarter: 2013Q2

REPORT INFORMATION
  Report Type: Report from Study
  Country: ID (occurrence: ID)
  Receive Date: 20130610
  Receipt Date: 20130610
  Transmission Date: 20140414
  Serious: Yes (Other)
  Sender: FDA-Public Use
  Company Number: ID-ROCHE-1234601

PATIENT
  Age: 65 Year
  Sex: Female

DRUGS (1)
  1. BONVIVA [Suspect]
     Indication: OSTEOPOROSIS
     Dosage: LAST DOSE PRIOR TO SAE: 18/MAY/2013
     Route: 048

REACTIONS (1)
  - Renal disorder [Not Recovered/Not Resolved]
